FAERS Safety Report 8209361-9 (Version None)
Quarter: 2012Q1

REPORT INFORMATION
  Report Type: 
  Country: None (occurrence: None)
  Receive Date: 20120314
  Receipt Date: 20120309
  Transmission Date: 20120608
  Serious: Yes (Other)
  Sender: FDA-Public Use
  Company Number: US-BAYER-2012-024580

PATIENT
  Age: 85 Year
  Sex: Female

DRUGS (1)
  1. NEXAVAR [Suspect]
     Dosage: 400 MG, BID
     Route: 048
     Dates: start: 20111201, end: 20120301

REACTIONS (1)
  - DISEASE PROGRESSION [None]
